FAERS Safety Report 8788354 (Version 1)
Quarter: 2012Q4

REPORT INFORMATION
  Report Type: Report from Study
  Country: US (occurrence: US)
  Receive Date: 20120914
  Receipt Date: 20120914
  Transmission Date: 20130627
  Serious: No
  Sender: FDA-Public Use
  Company Number: US-VERTEX PHARMACEUTICAL INC.-AE-2012-011776

PATIENT
  Age: 51 Year
  Sex: Female

DRUGS (3)
  1. INCIVEK [Suspect]
     Indication: HEPATITIS C
     Route: 048
     Dates: start: 20120120, end: 20120412
  2. PEGASYS [Concomitant]
     Indication: HEPATITIS C
     Route: 048
     Dates: start: 20120120, end: 20120629
  3. RIBAVIRIN [Concomitant]
     Indication: HEPATITIS C
     Dates: start: 20120120, end: 20120430

REACTIONS (1)
  - Candidiasis [Not Recovered/Not Resolved]
